APPROVED DRUG PRODUCT: NORETHINDRONE
Active Ingredient: NORETHINDRONE
Strength: 0.35MG
Dosage Form/Route: TABLET;ORAL-28
Application: A091209 | Product #001 | TE Code: AB2
Applicant: GLENMARK PHARMACEUTICALS LTD
Approved: Jul 22, 2010 | RLD: No | RS: No | Type: RX